FAERS Safety Report 9211057 (Version 5)
Quarter: 2014Q2

REPORT INFORMATION
  Report Type: Report from Study
  Country: US (occurrence: US)
  Receive Date: 20130404
  Receipt Date: 20140508
  Transmission Date: 20141212
  Serious: Yes (Death, Life-Threatening, Hospitalization, Other)
  Sender: FDA-Public Use
  Company Number: US-ACTELION-A-US2013-81631

PATIENT
  Age: 73 Year
  Sex: Female

DRUGS (3)
  1. TRACLEER [Suspect]
     Indication: PULMONARY ARTERIAL HYPERTENSION
     Dosage: UNK
     Route: 048
     Dates: end: 201404
  2. VENTAVIS [Suspect]
     Indication: PULMONARY ARTERIAL HYPERTENSION
     Dosage: UNK
     Route: 055
     Dates: end: 201404
  3. COUMADIN [Concomitant]

REACTIONS (31)
  - Septic shock [Fatal]
  - Hepatic failure [Fatal]
  - Renal failure [Fatal]
  - Respiratory failure [Fatal]
  - Hepatic cirrhosis [Unknown]
  - Multi-organ failure [Unknown]
  - Unresponsive to stimuli [Unknown]
  - Malaise [Unknown]
  - Acute myocardial infarction [Recovering/Resolving]
  - Troponin increased [Recovering/Resolving]
  - Blood glucose increased [Recovering/Resolving]
  - International normalised ratio increased [Unknown]
  - Anaemia [Unknown]
  - Haemoglobin decreased [Unknown]
  - Hypotension [Unknown]
  - Condition aggravated [Unknown]
  - Oedema [Unknown]
  - Abdominal distension [Unknown]
  - Generalised oedema [Unknown]
  - Encephalopathy [Fatal]
  - Jaundice [Fatal]
  - Pulmonary arterial hypertension [Unknown]
  - Ascites [Unknown]
  - Generalised oedema [Unknown]
  - Right ventricular failure [Unknown]
  - Pupil fixed [Unknown]
  - Generalised oedema [Unknown]
  - Drug dose omission [Unknown]
  - Dizziness postural [Unknown]
  - Wheezing [Unknown]
  - Fluid retention [Unknown]
